FAERS Safety Report 18395016 (Version 1)
Quarter: 2020Q4

REPORT INFORMATION
  Report Type: Spontaneous
  Country: US (occurrence: US)
  Receive Date: 20201016
  Receipt Date: 20201016
  Transmission Date: 20210114
  Serious: Yes (Other)
  Sender: FDA-Public Use
  Company Number: US-JAZZ-2020-US-013474

PATIENT
  Age: 70 Year
  Sex: Male

DRUGS (1)
  1. ZEPZELCA [Suspect]
     Active Substance: LURBINECTEDIN
     Indication: PRODUCT USED FOR UNKNOWN INDICATION
     Dosage: UNK, Q3W
     Route: 042

REACTIONS (5)
  - Blister [Unknown]
  - Rash [Unknown]
  - Hypokinesia [Unknown]
  - Swelling [Unknown]
  - Infusion site extravasation [Unknown]
